FAERS Safety Report 17004279 (Version 1)
Quarter: 2019Q4

REPORT INFORMATION
  Report Type: Not Available
  Country: US (occurrence: US)
  Receive Date: 20191107
  Receipt Date: 20191107
  Transmission Date: 20200122
  Serious: Yes (Death)
  Sender: FDA-Public Use
  Company Number: US-NEUROCRINE BIOSCIENCES INC.-2019NBI03300

PATIENT
  Sex: Male

DRUGS (7)
  1. ZYPREXA [Concomitant]
     Active Substance: OLANZAPINE
  2. NAMZARIC [Concomitant]
     Active Substance: DONEPEZIL HYDROCHLORIDE\MEMANTINE HYDROCHLORIDE
  3. LAMICTAL [Concomitant]
     Active Substance: LAMOTRIGINE
  4. CLARITIN [Concomitant]
     Active Substance: LORATADINE
  5. LOSARTAN. [Concomitant]
     Active Substance: LOSARTAN
  6. INGREZZA [Suspect]
     Active Substance: VALBENAZINE
     Indication: TARDIVE DYSKINESIA
     Route: 048
  7. METFORMIN [Concomitant]
     Active Substance: METFORMIN HYDROCHLORIDE

REACTIONS (1)
  - Death [Fatal]
